FAERS Safety Report 5911665-7 (Version None)
Quarter: 2008Q4

REPORT INFORMATION
  Report Type: 
  Country: None (occurrence: None)
  Receive Date: 20081003
  Receipt Date: 20080923
  Transmission Date: 20090506
  Serious: Yes (Other)
  Sender: FDA-Public Use
  Company Number: 2008BI022329

PATIENT
  Age: 32 Year
  Sex: Female
  Weight: 120.2032 kg

DRUGS (4)
  1. TYSABRI [Suspect]
     Indication: MULTIPLE SCLEROSIS
     Dosage: 300 MG; QM; IV
     Route: 042
     Dates: start: 20080712
  2. NEURONTIN [Concomitant]
  3. IBUPROFEN TABLETS [Concomitant]
  4. VICODIN [Concomitant]

REACTIONS (3)
  - ANAPHYLACTIC SHOCK [None]
  - INFUSION RELATED REACTION [None]
  - TREMOR [None]
